FAERS Safety Report 8128244-6 (Version None)
Quarter: 2011Q4

REPORT INFORMATION
  Report Type: 
  Country: None (occurrence: None)
  Receive Date: 20111227
  Receipt Date: 20111021
  Transmission Date: 20120403
  Serious: No
  Sender: FDA-Public Use
  Company Number: PHEH2011US07321

PATIENT
  Age: 52 Year
  Sex: Female

DRUGS (5)
  1. GILENYA [Suspect]
     Indication: MULTIPLE SCLEROSIS
     Dosage: 0.5 MG, QD, ORAL
     Route: 048
     Dates: start: 20111003
  2. AMBIEN [Concomitant]
  3. CLONAZEPAM [Concomitant]
  4. CITALOPRAM HYDROBROMIDE [Concomitant]
  5. NORTRIPTYLINE HCL [Concomitant]

REACTIONS (5)
  - FATIGUE [None]
  - HEART RATE DECREASED [None]
  - SOMNOLENCE [None]
  - DIZZINESS [None]
  - BLOOD PRESSURE DECREASED [None]
